FAERS Safety Report 8371239-8 (Version None)
Quarter: 2012Q2

REPORT INFORMATION
  Report Type: 
  Country: None (occurrence: None)
  Receive Date: 20120518
  Receipt Date: 20120508
  Transmission Date: 20120825
  Serious: Yes (Hospitalization)
  Sender: FDA-Public Use
  Company Number: US-SANOFI-AVENTIS-2012SA030202

PATIENT
  Age: 58 Year
  Sex: Female
  Weight: 108 kg

DRUGS (20)
  1. INVESTIGATIONAL DRUG [Suspect]
     Route: 048
     Dates: start: 20110527, end: 20120309
  2. DEXAMETHASONE [Concomitant]
     Route: 042
     Dates: start: 20110727
  3. POTASSIUM CHLORIDE [Concomitant]
     Route: 042
     Dates: start: 20120131, end: 20120131
  4. POTASSIUM CHLORIDE [Concomitant]
     Dates: start: 20120104
  5. TPN [Concomitant]
     Dates: start: 20120329
  6. PROCHLORPERAZINE [Concomitant]
     Indication: NAUSEA
     Dates: start: 20120320, end: 20120406
  7. DYAZIDE [Concomitant]
     Dosage: 37.5/50
     Dates: start: 20111005
  8. MEDROL [Concomitant]
     Dates: start: 20120325, end: 20120404
  9. METOPROLOL TARTRATE [Concomitant]
     Indication: HYPERTENSION
  10. FLUTICASONE PROPIONATE/SALMETEROL [Concomitant]
     Indication: ASTHMA
     Route: 055
     Dates: start: 20110201
  11. TPN [Concomitant]
     Indication: DEHYDRATION
     Dates: start: 20120329
  12. POTASSIUM CHLORIDE [Concomitant]
     Dates: start: 20120229, end: 20120229
  13. DOCETAXEL [Suspect]
     Route: 042
     Dates: start: 20110727, end: 20110727
  14. TPN [Concomitant]
     Indication: NUTRITIONAL SUPPORT
     Dates: start: 20120329
  15. DOCETAXEL [Suspect]
     Route: 042
     Dates: start: 20120307, end: 20120307
  16. ALPRAZOLAM [Concomitant]
     Indication: ANXIETY
  17. GRANISETRON [Concomitant]
     Dosage: DAYS 1, 8, 15 PRIOR TO STUDY DRUGS
     Dates: start: 20110727
  18. POTASSIUM CHLORIDE [Concomitant]
     Dates: start: 20111215, end: 20120104
  19. POTASSIUM CHLORIDE [Concomitant]
     Route: 042
     Dates: start: 20120104, end: 20120104
  20. LOPERAMIDE [Concomitant]
     Dates: start: 20120314, end: 20120319

REACTIONS (1)
  - ASPIRATION [None]
